FAERS Safety Report 10149794 (Version 1)
Quarter: 2014Q2

REPORT INFORMATION
  Report Type: Spontaneous
  Country: US (occurrence: None)
  Receive Date: 20140501
  Receipt Date: 20140501
  Transmission Date: 20141212
  Serious: Yes (Hospitalization)
  Sender: FDA-Public Use
  Company Number: None

PATIENT
  Age: 45 Year
  Sex: Male

DRUGS (5)
  1. ATORVASTATIN [Suspect]
     Indication: HYPERLIPIDAEMIA
     Dosage: 80 DAILY PO
     Route: 048
     Dates: start: 20131005, end: 20131007
  2. ALBUMIN [Concomitant]
  3. BUMETANIDE [Concomitant]
  4. CEFEPIME [Concomitant]
  5. LACTULOSE [Concomitant]

REACTIONS (6)
  - Renal failure acute [None]
  - Muscular weakness [None]
  - Rhabdomyolysis [None]
  - Dysarthria [None]
  - Dysphagia [None]
  - Continuous haemodiafiltration [None]
